FAERS Safety Report 11270650 (Version 1)
Quarter: 2015Q3

REPORT INFORMATION
  Report Type: Report from Study
  Country: DE (occurrence: DE)
  Receive Date: 20150714
  Receipt Date: 20150714
  Transmission Date: 20151125
  Serious: Yes (Hospitalization)
  Sender: FDA-Public Use
  Company Number: DE-TEVA-561088GER

PATIENT
  Age: 46 Year
  Sex: Female

DRUGS (4)
  1. IBEROGAST [Suspect]
     Active Substance: HERBALS
     Indication: ABDOMINAL DISCOMFORT
     Route: 065
  2. IBUPROFEN 600MG [Suspect]
     Active Substance: IBUPROFEN
     Indication: PAIN
     Route: 048
  3. COPAXONE [Suspect]
     Active Substance: GLATIRAMER ACETATE
     Indication: MULTIPLE SCLEROSIS
     Dosage: 20 MILLIGRAM DAILY;
     Dates: start: 20150317, end: 20150413
  4. FRANKINCENSE PREPARATION [Suspect]
     Active Substance: HERBALS
     Route: 065

REACTIONS (3)
  - Hepatic enzyme increased [Unknown]
  - Hepatic failure [Unknown]
  - Hepatitis [Unknown]

NARRATIVE: CASE EVENT DATE: 2015
